FAERS Safety Report 16377427 (Version 1)
Quarter: 2019Q2

REPORT INFORMATION
  Report Type: Spontaneous
  Country: GB (occurrence: GB)
  Receive Date: 20190531
  Receipt Date: 20190531
  Transmission Date: 20190711
  Serious: Yes (Hospitalization)
  Sender: FDA-Public Use
  Company Number: GB-VERTEX PHARMACEUTICALS-2019-004805

PATIENT
  Age: 18 Year
  Sex: Male

DRUGS (4)
  1. DEOXYCHOLIC ACID [Concomitant]
     Active Substance: DEOXYCHOLIC ACID
  2. KALYDECO [Suspect]
     Active Substance: IVACAFTOR
     Indication: CYSTIC FIBROSIS
     Dosage: 150 MG, BID
     Route: 048
     Dates: start: 20130308
  3. CREON [Concomitant]
     Active Substance: PANCRELIPASE AMYLASE\PANCRELIPASE LIPASE\PANCRELIPASE PROTEASE
  4. DORNASE [Concomitant]
     Active Substance: STREPTODORNASE\STREPTOKINASE

REACTIONS (1)
  - Pseudomonas infection [Unknown]

NARRATIVE: CASE EVENT DATE: 201904
